FAERS Safety Report 16838396 (Version 1)
Quarter: 2019Q3

REPORT INFORMATION
  Report Type: Spontaneous
  Country: US (occurrence: US)
  Receive Date: 20190923
  Receipt Date: 20190923
  Transmission Date: 20191005
  Serious: No
  Sender: FDA-Public Use
  Company Number: US-ALLERGAN-1851842US

PATIENT

DRUGS (1)
  1. ZENPEP [Suspect]
     Active Substance: PANCRELIPASE AMYLASE\PANCRELIPASE LIPASE\PANCRELIPASE PROTEASE
     Indication: ENDOCRINE PANCREATIC DISORDER
     Dosage: 40000 UNITS, UNK
     Route: 065

REACTIONS (2)
  - Off label use [Unknown]
  - Constipation [Unknown]
